FAERS Safety Report 8211135-X (Version None)
Quarter: 2012Q1

REPORT INFORMATION
  Report Type: 
  Country: None (occurrence: None)
  Receive Date: 20120315
  Receipt Date: 20120313
  Transmission Date: 20120608
  Serious: Yes (Other)
  Sender: FDA-Public Use
  Company Number: US-SHIRE-ALL1-2012-01394

PATIENT
  Sex: Female
  Weight: 58.05 kg

DRUGS (7)
  1. PENTASA [Suspect]
     Indication: CROHN'S DISEASE
     Dosage: 1000 MG (FOUR 250 MG CAPSULES), 2X/DAY:BID
     Route: 048
     Dates: start: 20120201, end: 20120201
  2. PENTASA [Suspect]
     Indication: COLITIS ULCERATIVE
  3. OMEPRAZOLE [Concomitant]
     Indication: GASTROOESOPHAGEAL REFLUX DISEASE
     Dosage: 40 MG, 1X/DAY:QD
     Route: 048
     Dates: start: 20110101
  4. PROMETHAZINE [Concomitant]
     Indication: GASTROINTESTINAL DISORDER
     Dosage: 50 MG(TWO 25 MG), AS REQ'D EVERY 4-6 HOURS
     Route: 048
     Dates: start: 20110101
  5. ZOFRAN [Concomitant]
     Indication: GASTROINTESTINAL DISORDER
     Dosage: UNK, AS REQ'D
     Route: 048
     Dates: start: 20110101
  6. BENTYL [Concomitant]
     Indication: COLITIS ULCERATIVE
     Dosage: 10 MG, 4X/DAY:QID
     Route: 048
     Dates: start: 20110101
  7. TRAMADOL HCL [Concomitant]
     Indication: PAIN
     Dosage: 50 MG (1-2 TABLETS), AS REQ'D EVERY 4-6 HOURS
     Route: 048
     Dates: start: 20110101

REACTIONS (3)
  - HEADACHE [None]
  - VOMITING [None]
  - BLOOD PRESSURE DECREASED [None]
